FAERS Safety Report 8117185-6 (Version None)
Quarter: 2012Q1

REPORT INFORMATION
  Report Type: 
  Country: None (occurrence: None)
  Receive Date: 20120206
  Receipt Date: 20120130
  Transmission Date: 20120608
  Serious: No
  Sender: FDA-Public Use
  Company Number: US-PFIZER INC-2011304177

PATIENT
  Sex: Female
  Weight: 78.458 kg

DRUGS (3)
  1. SIMVASTATIN [Concomitant]
     Dosage: 10 MG, 1X/DAY
  2. LISINOPRIL AND HYDROCHLOROTHIAZIDE [Concomitant]
     Dosage: 10/12.5 MG, 1X/DAY
  3. METAXALONE [Suspect]
     Indication: BACK DISORDER
     Dosage: 800 MG,
     Dates: start: 20111212, end: 20111212

REACTIONS (4)
  - URTICARIA [None]
  - ERYTHEMA [None]
  - RASH [None]
  - PRURITUS [None]
